FAERS Safety Report 17919714 (Version 1)
Quarter: 2020Q2

REPORT INFORMATION
  Report Type: Spontaneous
  Country: JP (occurrence: JP)
  Receive Date: 20200619
  Receipt Date: 20200619
  Transmission Date: 20200714
  Serious: Yes (Other)
  Sender: FDA-Public Use
  Company Number: NVSC2020JP170352

PATIENT
  Age: 8 Year
  Sex: Female

DRUGS (1)
  1. BETAMETHASONE. [Suspect]
     Active Substance: BETAMETHASONE
     Indication: CONGENITAL APLASTIC ANAEMIA
     Dosage: 0.1 MG/KG (HIGH DOSE)
     Route: 065

REACTIONS (2)
  - Glaucoma [Unknown]
  - Product use in unapproved indication [Unknown]
